FAERS Safety Report 17362186 (Version 3)
Quarter: 2020Q2

REPORT INFORMATION
  Report Type: Spontaneous
  Country: US (occurrence: US)
  Receive Date: 20200203
  Receipt Date: 20200602
  Transmission Date: 20200713
  Serious: Yes (Hospitalization, Other)
  Sender: FDA-Public Use
  Company Number: US-PFIZER INC-2020041195

PATIENT
  Age: 58 Year
  Sex: Female

DRUGS (1)
  1. XELJANZ XR [Suspect]
     Active Substance: TOFACITINIB CITRATE
     Indication: RHEUMATOID ARTHRITIS
     Dosage: 11 MG, DAILY
     Route: 048
     Dates: start: 201909

REACTIONS (7)
  - Hepatic cancer [Unknown]
  - Sensitivity to weather change [Unknown]
  - Pain [Unknown]
  - Prescription drug used without a prescription [Unknown]
  - Neoplasm recurrence [Unknown]
  - Gastrointestinal disorder [Unknown]
  - Endocrine neoplasm [Unknown]

NARRATIVE: CASE EVENT DATE: 2019
